FAERS Safety Report 19113512 (Version 2)
Quarter: 2021Q2

REPORT INFORMATION
  Report Type: Spontaneous
  Country: JP (occurrence: JP)
  Receive Date: 20210408
  Receipt Date: 20210520
  Transmission Date: 20210717
  Serious: Yes (Death)
  Sender: FDA-Public Use
  Company Number: JP-009507513-2103JPN002769J

PATIENT
  Age: 73 Year
  Sex: Male
  Weight: 56 kg

DRUGS (1)
  1. KEYTRUDA [Suspect]
     Active Substance: PEMBROLIZUMAB
     Indication: LUNG SQUAMOUS CELL CARCINOMA STAGE IV
     Dosage: 200 MILLIGRAM, Q3W
     Route: 041
     Dates: start: 20201202, end: 20201202

REACTIONS (1)
  - Haemoptysis [Fatal]

NARRATIVE: CASE EVENT DATE: 20201205
